FAERS Safety Report 6398774-6 (Version None)
Quarter: 2009Q4

REPORT INFORMATION
  Report Type: 
  Country: None (occurrence: None)
  Receive Date: 20091007
  Receipt Date: 20090922
  Transmission Date: 20100525
  Serious: Yes (Other)
  Sender: FDA-Public Use
  Company Number: 2009S1000272

PATIENT
  Age: 45 Year
  Sex: Male

DRUGS (11)
  1. ACITRETIN [Suspect]
     Indication: PSORIASIS
     Dosage: 20 MG; PO
     Route: 048
     Dates: start: 20090801, end: 20090818
  2. ACETAMINOPHEN [Suspect]
     Indication: ARRHYTHMIA
     Dosage: 500 MG; 750 MG
     Dates: start: 20090822, end: 20090822
  3. ACETAMINOPHEN [Suspect]
     Indication: DEPRESSION
     Dosage: 500 MG; 750 MG
     Dates: start: 20090822, end: 20090822
  4. ACETAMINOPHEN [Suspect]
     Indication: FEELING HOT
     Dosage: 500 MG; 750 MG
     Dates: start: 20090822, end: 20090822
  5. ACETAMINOPHEN [Suspect]
     Indication: MUSCULAR WEAKNESS
     Dosage: 500 MG; 750 MG
     Dates: start: 20090822, end: 20090822
  6. ACETAMINOPHEN [Suspect]
     Indication: MYALGIA
     Dosage: 500 MG; 750 MG
     Dates: start: 20090822, end: 20090822
  7. ACETAMINOPHEN [Suspect]
     Indication: ARRHYTHMIA
     Dosage: 500 MG; 750 MG
     Dates: start: 20090825, end: 20090825
  8. ACETAMINOPHEN [Suspect]
     Indication: DEPRESSION
     Dosage: 500 MG; 750 MG
     Dates: start: 20090825, end: 20090825
  9. ACETAMINOPHEN [Suspect]
     Indication: FEELING HOT
     Dosage: 500 MG; 750 MG
     Dates: start: 20090825, end: 20090825
  10. ACETAMINOPHEN [Suspect]
     Indication: MUSCULAR WEAKNESS
     Dosage: 500 MG; 750 MG
     Dates: start: 20090825, end: 20090825
  11. ACETAMINOPHEN [Suspect]
     Indication: MYALGIA
     Dosage: 500 MG; 750 MG
     Dates: start: 20090825, end: 20090825

REACTIONS (17)
  - ANXIETY [None]
  - ARRHYTHMIA [None]
  - ASTHENIA [None]
  - BLOOD CREATINE PHOSPHOKINASE INCREASED [None]
  - DECREASED APPETITE [None]
  - DEPRESSION [None]
  - DRY EYE [None]
  - DRY THROAT [None]
  - DYSPNOEA [None]
  - FEELING HOT [None]
  - HYPOGLYCAEMIA [None]
  - MUSCLE SPASMS [None]
  - MYALGIA [None]
  - NASAL DRYNESS [None]
  - NAUSEA [None]
  - PAIN IN EXTREMITY [None]
  - SYNCOPE [None]
